FAERS Safety Report 15343370 (Version 2)
Quarter: 2018Q4

REPORT INFORMATION
  Report Type: Report from Study
  Country: US (occurrence: US)
  Receive Date: 20180903
  Receipt Date: 20181231
  Transmission Date: 20190204
  Serious: No
  Sender: FDA-Public Use
  Company Number: PHEH2018US035632

PATIENT
  Sex: Female

DRUGS (1)
  1. GILENYA [Suspect]
     Active Substance: FINGOLIMOD HYDROCHLORIDE
     Indication: MULTIPLE SCLEROSIS
     Dosage: 0.5 MG, QD
     Route: 048
     Dates: start: 20180725

REACTIONS (6)
  - Cognitive disorder [Unknown]
  - Anxiety [Unknown]
  - Pain [Unknown]
  - Balance disorder [Recovering/Resolving]
  - Respiratory disorder [Unknown]
  - Eye disorder [Unknown]
